FAERS Safety Report 8244743-0 (Version None)
Quarter: 2012Q1

REPORT INFORMATION
  Report Type: 
  Country: None (occurrence: None)
  Receive Date: 20120329
  Receipt Date: 20110311
  Transmission Date: 20120608
  Serious: No
  Sender: FDA-Public Use
  Company Number: US-MYLANLABS-2011S1005309

PATIENT
  Age: 54 Year
  Sex: Female
  Weight: 48.99 kg

DRUGS (2)
  1. FENTANYL-100 [Suspect]
     Indication: NEURALGIA
     Dosage: CHANGED Q. 72 HOURS.
     Route: 062
     Dates: start: 20101101
  2. OXYCODONE HCL [Concomitant]
     Indication: BREAKTHROUGH PAIN
     Dates: start: 20100901

REACTIONS (3)
  - DRUG INEFFECTIVE [None]
  - NEURALGIA [None]
  - DRUG WITHDRAWAL SYNDROME [None]
